FAERS Safety Report 9382319 (Version 1)
Quarter: 2013Q3

REPORT INFORMATION
  Report Type: Spontaneous
  Country: US (occurrence: US)
  Receive Date: 20130703
  Receipt Date: 20130703
  Transmission Date: 20140515
  Serious: No
  Sender: FDA-Public Use
  Company Number: US-UPSHER-SMITH LABORATORIES, INC.-12002326

PATIENT
  Age: 33 Year
  Sex: Female

DRUGS (3)
  1. DIVIGEL [Suspect]
     Indication: HOT FLUSH
     Dosage: 1 MG APPLIED TO THE RIGHT THIGH, QD
     Route: 061
     Dates: start: 201110
  2. SYNTHROID [Concomitant]
     Dosage: UNK
  3. XANAX [Concomitant]
     Dosage: UNK

REACTIONS (2)
  - Joint swelling [Not Recovered/Not Resolved]
  - Local swelling [Not Recovered/Not Resolved]
